FAERS Safety Report 13955849 (Version 3)
Quarter: 2018Q2

REPORT INFORMATION
  Report Type: Spontaneous
  Country: US (occurrence: US)
  Receive Date: 20170911
  Receipt Date: 20180525
  Transmission Date: 20180711
  Serious: Yes (Hospitalization, Other)
  Sender: FDA-Public Use
  Company Number: US-DSJP-DSU-2017-136211

PATIENT

DRUGS (2)
  1. BENICAR HCT [Suspect]
     Active Substance: HYDROCHLOROTHIAZIDE\OLMESARTAN MEDOXOMIL
     Dosage: 40-25 MG HALF TAB, QD
     Route: 048
     Dates: start: 20111118
  2. BENICAR HCT [Suspect]
     Active Substance: HYDROCHLOROTHIAZIDE\OLMESARTAN MEDOXOMIL
     Indication: PRODUCT USED FOR UNKNOWN INDICATION
     Dosage: 40-25 MG, QD
     Route: 048
     Dates: start: 20130122, end: 20150115

REACTIONS (8)
  - Colitis [Unknown]
  - Helicobacter gastritis [Recovering/Resolving]
  - Constipation [Recovered/Resolved]
  - Peptic ulcer [Not Recovered/Not Resolved]
  - Gastroenteritis [Recovering/Resolving]
  - Duodenal polyp [Unknown]
  - Drug reaction with eosinophilia and systemic symptoms [Unknown]
  - Drug administration error [Unknown]

NARRATIVE: CASE EVENT DATE: 20111118
